FAERS Safety Report 7489181-3 (Version None)
Quarter: 2011Q2

REPORT INFORMATION
  Report Type: 
  Country: None (occurrence: None)
  Receive Date: 20110518
  Receipt Date: 20110516
  Transmission Date: 20111010
  Serious: Yes (Death, Life-Threatening, Hospitalization)
  Sender: FDA-Public Use
  Company Number: PHHY2010JP80534

PATIENT
  Sex: Male

DRUGS (9)
  1. KREMEZIN [Concomitant]
     Dosage: 2 DF, UNK
     Route: 048
     Dates: start: 20100714, end: 20101120
  2. SUNITINIB MALATE [Concomitant]
     Indication: METASTATIC RENAL CELL CARCINOMA
     Dosage: 50 MG,
     Route: 048
     Dates: start: 20090206
  3. SUNITINIB MALATE [Concomitant]
     Dosage: UNK
     Dates: start: 20100620
  4. KETOPROFEN [Concomitant]
     Dosage: UNK
     Route: 062
     Dates: start: 20100714, end: 20101120
  5. NEUFAN [Concomitant]
     Dosage: 100 MG,
     Route: 048
     Dates: start: 20100714, end: 20101120
  6. NEUFAN [Concomitant]
     Dosage: UNK
  7. AFINITOR [Suspect]
     Indication: METASTATIC RENAL CELL CARCINOMA
     Dosage: 10 MG, DAILY
     Route: 048
     Dates: start: 20100714, end: 20100728
  8. AFINITOR [Suspect]
     Dosage: 5 MG, DAILY
     Route: 048
     Dates: start: 20100831, end: 20101109
  9. AFINITOR [Suspect]
     Dosage: 10 MG, DAILY
     Route: 048
     Dates: start: 20100804, end: 20100824

REACTIONS (3)
  - DEPRESSED LEVEL OF CONSCIOUSNESS [None]
  - DEATH [None]
  - CEREBRAL HAEMORRHAGE [None]
